FAERS Safety Report 6241557-8 (Version None)
Quarter: 2009Q2

REPORT INFORMATION
  Report Type: 
  Country: None (occurrence: None)
  Receive Date: 20090623
  Receipt Date: 20030612
  Transmission Date: 20091009
  Serious: Yes (Hospitalization)
  Sender: FDA-Public Use
  Company Number: SE-ROCHE-339968

PATIENT
  Sex: Male
  Weight: 54 kg

DRUGS (30)
  1. MYCOPHENOLATE MOFETIL [Suspect]
     Route: 048
     Dates: start: 20030516
  2. MYCOPHENOLATE MOFETIL [Suspect]
     Route: 048
     Dates: start: 20030517
  3. MYCOPHENOLATE MOFETIL [Suspect]
     Route: 048
     Dates: start: 20030518
  4. MYCOPHENOLATE MOFETIL [Suspect]
     Route: 048
     Dates: start: 20030529
  5. DACLIZUMAB [Suspect]
     Route: 042
     Dates: start: 20030516, end: 20030516
  6. DACLIZUMAB [Suspect]
     Route: 042
     Dates: start: 20030530, end: 20030711
  7. CYCLOSPORINE [Suspect]
     Route: 065
  8. TACROLIMUS [Suspect]
     Dosage: DRUG REPORTED: TACROLIMUUS
     Route: 048
     Dates: start: 20030516
  9. TACROLIMUS [Suspect]
     Route: 048
     Dates: start: 20040517
  10. TACROLIMUS [Suspect]
     Dosage: DRUG REPORTED: TACROLIMUUS
     Route: 048
     Dates: start: 20030522
  11. PREDNISOLONE [Suspect]
     Route: 048
     Dates: start: 20030516
  12. METOPROLOL SUCCINATE [Concomitant]
     Route: 048
     Dates: start: 19990621
  13. METOPROLOL SUCCINATE [Concomitant]
     Route: 048
     Dates: start: 20030523
  14. FELODIPINE [Concomitant]
     Route: 048
     Dates: start: 19990621
  15. FELODIPINE [Concomitant]
     Route: 048
     Dates: start: 20030519, end: 20030612
  16. FUROSEMID [Concomitant]
     Route: 048
  17. PANTOPRAZOL [Concomitant]
     Route: 048
     Dates: start: 20030518
  18. GANCICLOVIR [Concomitant]
     Route: 048
     Dates: start: 20030521, end: 20030820
  19. TRAMADOL HCL [Concomitant]
     Route: 048
     Dates: start: 20030602
  20. ATACAND [Concomitant]
     Route: 048
     Dates: start: 20020213
  21. CANDESARTAN CILEXETIL [Concomitant]
     Dosage: DRUG REPORTED: CANDESART CILEXETIL
     Route: 048
     Dates: start: 20010426, end: 20030611
  22. ACID. ACETYLSALICYLIC. [Concomitant]
     Route: 048
     Dates: start: 20030612
  23. FLOXACILLIN SODIUM [Concomitant]
     Route: 048
     Dates: start: 20030619, end: 20030725
  24. ATORVASTATIN CALCIUM [Concomitant]
     Route: 048
     Dates: start: 20030915
  25. ATORVASTATIN CALCIUM [Concomitant]
     Route: 048
     Dates: start: 20040413
  26. ACETYLSALICYLSYRA [Concomitant]
     Route: 048
     Dates: start: 20030612
  27. METHYLPREDNISOLONE [Suspect]
     Dosage: DRUG REPORTED: METYLPREDNISOLONE
     Route: 042
     Dates: start: 20030516
  28. METHYLPREDNISOLONE [Suspect]
     Route: 042
     Dates: start: 20030527, end: 20030531
  29. PENTAMIDIN [Concomitant]
     Dosage: ROUTE: IH
     Route: 050
     Dates: start: 20030529
  30. PENTAMIDIN [Concomitant]
     Route: 050
     Dates: start: 20030731

REACTIONS (3)
  - HERPES ZOSTER [None]
  - RENAL IMPAIRMENT [None]
  - UROSEPSIS [None]
